FAERS Safety Report 24815644 (Version 1)
Quarter: 2025Q1

REPORT INFORMATION
  Report Type: Report from Study
  Country: MX (occurrence: MX)
  Receive Date: 20250107
  Receipt Date: 20250107
  Transmission Date: 20250408
  Serious: Yes (Other)
  Sender: ROCHE
  Company Number: MX-ROCHE-10000173317

PATIENT
  Age: 64 Year
  Sex: Female
  Weight: 49 kg

DRUGS (2)
  1. GAZYVA [Suspect]
     Active Substance: OBINUTUZUMAB
     Indication: Follicular lymphoma
     Route: 042
     Dates: start: 202305
  2. ANAPROX [Concomitant]
     Active Substance: NAPROXEN SODIUM

REACTIONS (7)
  - Immune system disorder [Not Recovered/Not Resolved]
  - Gastric infection [Unknown]
  - Urinary tract infection [Unknown]
  - Pyrexia [Not Recovered/Not Resolved]
  - Cough [Not Recovered/Not Resolved]
  - Malaise [Not Recovered/Not Resolved]
  - Weight decreased [Unknown]

NARRATIVE: CASE EVENT DATE: 20240101
